FAERS Safety Report 17958307 (Version 1)
Quarter: 2020Q2

REPORT INFORMATION
  Report Type: Spontaneous
  Country: JP (occurrence: JP)
  Receive Date: 20200629
  Receipt Date: 20200629
  Transmission Date: 20200714
  Serious: Yes (Death, Life-Threatening)
  Sender: FDA-Public Use
  Company Number: JP-MALLINCKRODT-T202002874

PATIENT
  Sex: Female
  Weight: 2 kg

DRUGS (10)
  1. DOPAMINE [Concomitant]
     Active Substance: DOPAMINE HYDROCHLORIDE
     Indication: NEWBORN PERSISTENT PULMONARY HYPERTENSION
     Dosage: UNK
     Route: 065
  2. CYTARABINE. [Suspect]
     Active Substance: CYTARABINE
     Indication: NEWBORN PERSISTENT PULMONARY HYPERTENSION
     Dosage: 1 MILLIGRAM/KILOGRAM
     Route: 065
  3. METHYLPREDNISOLONE. [Concomitant]
     Active Substance: METHYLPREDNISOLONE
     Indication: NEWBORN PERSISTENT PULMONARY HYPERTENSION
     Dosage: UNK
     Route: 065
  4. HYDROCORTISONE. [Concomitant]
     Active Substance: HYDROCORTISONE
     Indication: NEWBORN PERSISTENT PULMONARY HYPERTENSION
     Dosage: UNK
     Route: 065
  5. INOFLO [Suspect]
     Active Substance: NITRIC OXIDE
     Indication: NEWBORN PERSISTENT PULMONARY HYPERTENSION
     Dosage: UNK, INHALATION
     Route: 055
  6. DOBUTAMINE [Concomitant]
     Active Substance: DOBUTAMINE HYDROCHLORIDE
     Indication: NEWBORN PERSISTENT PULMONARY HYPERTENSION
     Dosage: UNK
     Route: 065
  7. OXYGEN. [Concomitant]
     Active Substance: OXYGEN
     Indication: OXYGEN THERAPY
  8. OXYGEN. [Concomitant]
     Active Substance: OXYGEN
     Indication: NEWBORN PERSISTENT PULMONARY HYPERTENSION
     Dosage: UNK
     Route: 065
  9. NITROGEN. [Concomitant]
     Active Substance: NITROGEN
     Indication: CARDIOVASCULAR DISORDER
     Dosage: UNK INHALATION
     Route: 055
  10. ALBUMIN [Concomitant]
     Active Substance: ALBUMIN HUMAN
     Indication: NEWBORN PERSISTENT PULMONARY HYPERTENSION
     Dosage: UNK
     Route: 065

REACTIONS (7)
  - Hepatic fibrosis [Fatal]
  - Disease progression [Fatal]
  - Therapy non-responder [Unknown]
  - Renal failure [Fatal]
  - Hypovolaemia [Recovered/Resolved]
  - Pulmonary haemorrhage [Recovered/Resolved]
  - Cardiac arrest [Recovered/Resolved]
